FAERS Safety Report 23790271 (Version 1)
Quarter: 2024Q2

REPORT INFORMATION
  Report Type: Spontaneous
  Country: FR (occurrence: FR)
  Receive Date: 20240427
  Receipt Date: 20240427
  Transmission Date: 20240715
  Serious: Yes (Disabling)
  Sender: FDA-Public Use
  Company Number: FR-IPSEN Group, Research and Development-2024-06508

PATIENT
  Sex: Male

DRUGS (1)
  1. CABOMETYX [Suspect]
     Active Substance: CABOZANTINIB S-MALATE
     Indication: Product used for unknown indication
     Dosage: 60 MG
     Route: 065

REACTIONS (4)
  - Gait disturbance [Unknown]
  - Pain [Unknown]
  - Blister [Unknown]
  - Pain in extremity [Unknown]
